FAERS Safety Report 18263306 (Version 1)
Quarter: 2020Q3

REPORT INFORMATION
  Report Type: Spontaneous
  Country: US (occurrence: US)
  Receive Date: 20200914
  Receipt Date: 20200914
  Transmission Date: 20201103
  Serious: No
  Sender: FDA-Public Use
  Company Number: None

PATIENT
  Age: 81 Year
  Sex: Female
  Weight: 47.25 kg

DRUGS (2)
  1. PREVIDENT 5000 SENSITIVE [Suspect]
     Active Substance: POTASSIUM NITRATE\SODIUM FLUORIDE
     Indication: HYPERAESTHESIA TEETH
     Route: 004
     Dates: start: 20200905, end: 20200909
  2. PREVIDENT 5000 SENSITIVE [Suspect]
     Active Substance: POTASSIUM NITRATE\SODIUM FLUORIDE
     Indication: DENTAL DISORDER PROPHYLAXIS
     Route: 004
     Dates: start: 20200905, end: 20200909

REACTIONS (3)
  - Purulent discharge [None]
  - Gingival erythema [None]
  - Gingival swelling [None]

NARRATIVE: CASE EVENT DATE: 20200910
